FAERS Safety Report 7474711-8 (Version None)
Quarter: 2011Q2

REPORT INFORMATION
  Report Type: 
  Country: None (occurrence: None)
  Receive Date: 20110505
  Receipt Date: 20110421
  Transmission Date: 20111010
  Serious: Yes (Hospitalization)
  Sender: FDA-Public Use
  Company Number: 015714

PATIENT
  Sex: Male

DRUGS (11)
  1. AMLODIPINE BESYLATE [Concomitant]
  2. KETOPROFEN [Concomitant]
  3. ITOPRIDE HYDROCHLORIDE [Concomitant]
  4. RISEDRONATE SODIUM [Concomitant]
  5. METHOTREXATE [Concomitant]
  6. LANSOPRAZOLE [Concomitant]
  7. MELOXICAM [Concomitant]
  8. CIMZIA [Suspect]
     Indication: RHEUMATOID ARTHRITIS
     Dosage: (400 MG 1X/2 WEEKS, C87041 SUBCUTANEOUS), (200 MG 1X/2 WEEKS SUBCUTANEOUS)
     Route: 058
     Dates: start: 20100304
  9. CIMZIA [Suspect]
     Indication: RHEUMATOID ARTHRITIS
     Dosage: (400 MG 1X/2 WEEKS, C87041 SUBCUTANEOUS), (200 MG 1X/2 WEEKS SUBCUTANEOUS)
     Route: 058
     Dates: start: 20100722
  10. CIMZIA [Suspect]
     Indication: RHEUMATOID ARTHRITIS
     Dosage: (400 MG 1X/2 WEEKS, C87041 SUBCUTANEOUS), (200 MG 1X/2 WEEKS SUBCUTANEOUS)
     Route: 058
     Dates: start: 20091112, end: 20100218
  11. CANDESARTAN CILEXETIL [Concomitant]

REACTIONS (12)
  - DECREASED APPETITE [None]
  - PYREXIA [None]
  - COUGH [None]
  - DYSPHONIA [None]
  - PAIN IN EXTREMITY [None]
  - SPINAL COMPRESSION FRACTURE [None]
  - BRONCHITIS [None]
  - MALAISE [None]
  - BACK PAIN [None]
  - IMMUNE SYSTEM DISORDER [None]
  - FOOT DEFORMITY [None]
  - FALL [None]
